FAERS Safety Report 7506672-7 (Version None)
Quarter: 2011Q2

REPORT INFORMATION
  Report Type: 
  Country: None (occurrence: None)
  Receive Date: 20110526
  Receipt Date: 20110516
  Transmission Date: 20111010
  Serious: Yes (Other)
  Sender: FDA-Public Use
  Company Number: GB-ELI_LILLY_AND_COMPANY-GB201105004596

PATIENT
  Age: 65 Year
  Sex: Female

DRUGS (2)
  1. ZYPREXA [Suspect]
     Indication: SCHIZOAFFECTIVE DISORDER
     Dosage: 12.5 MG, UNK
     Dates: start: 19980101
  2. ZYPREXA [Suspect]
     Dosage: 10 MG, UNK
     Dates: start: 20110426

REACTIONS (2)
  - OEDEMA PERIPHERAL [None]
  - CARDIAC FAILURE [None]
